FAERS Safety Report 7340711-1 (Version None)
Quarter: 2011Q1

REPORT INFORMATION
  Report Type: 
  Country: None (occurrence: None)
  Receive Date: 20110309
  Receipt Date: 20110228
  Transmission Date: 20110831
  Serious: Yes (Other)
  Sender: FDA-Public Use
  Company Number: DE-ROCHE-763032

PATIENT
  Sex: Female
  Weight: 63 kg

DRUGS (20)
  1. TACROLIMUS [Suspect]
     Route: 048
     Dates: start: 20100623, end: 20100626
  2. TACROLIMUS [Suspect]
     Route: 048
     Dates: start: 20100627, end: 20100630
  3. THYMOGLOBULIN [Suspect]
     Dosage: FORM: LIQUID
     Route: 042
     Dates: start: 20100623, end: 20100625
  4. TACROLIMUS [Suspect]
     Route: 048
     Dates: start: 20110216, end: 20110223
  5. PREDNISOLONE [Suspect]
     Route: 048
     Dates: start: 20100623, end: 20100623
  6. PREDNISOLONE [Suspect]
     Route: 048
     Dates: start: 20100624, end: 20100624
  7. PREDNISOLONE [Suspect]
     Route: 048
     Dates: start: 20100627, end: 20100630
  8. MYCOPHENOLATE MOFETIL [Suspect]
     Route: 048
     Dates: start: 20100623, end: 20100930
  9. TACROLIMUS [Suspect]
     Route: 048
     Dates: start: 20100706, end: 20100722
  10. PREDNISOLONE [Suspect]
     Route: 048
     Dates: start: 20100626, end: 20100626
  11. PREDNISOLONE [Suspect]
     Route: 048
     Dates: start: 20100625, end: 20100625
  12. TACROLIMUS [Suspect]
     Route: 048
     Dates: start: 20100703, end: 20100705
  13. TACROLIMUS [Suspect]
     Route: 048
     Dates: start: 20100817, end: 20100914
  14. TACROLIMUS [Suspect]
     Route: 048
     Dates: start: 20110224
  15. MYCOPHENOLATE MOFETIL [Suspect]
     Route: 048
     Dates: start: 20101001, end: 20110215
  16. TACROLIMUS [Suspect]
     Route: 048
     Dates: start: 20100806, end: 20100816
  17. MYCOPHENOLATE MOFETIL [Suspect]
     Route: 048
     Dates: start: 20110216
  18. TACROLIMUS [Suspect]
     Route: 048
     Dates: start: 20100701, end: 20100702
  19. TACROLIMUS [Suspect]
     Route: 048
     Dates: start: 20100723, end: 20100805
  20. TACROLIMUS [Suspect]
     Route: 048
     Dates: start: 20100915, end: 20110215

REACTIONS (1)
  - TRANSPLANT REJECTION [None]
